FAERS Safety Report 6742758-2 (Version None)
Quarter: 2010Q2

REPORT INFORMATION
  Report Type: 
  Country: None (occurrence: None)
  Receive Date: 20100526
  Receipt Date: 20100518
  Transmission Date: 20101027
  Serious: No
  Sender: FDA-Public Use
  Company Number: US-ABBOTT-10P-163-0646820-00

PATIENT
  Sex: Female
  Weight: 43.13 kg

DRUGS (7)
  1. PARICALCITOL [Suspect]
     Indication: HYPERPARATHYROIDISM
     Route: 048
     Dates: start: 20100401
  2. ENALAPRIL [Concomitant]
     Indication: HYPERTENSION
     Route: 048
  3. AMLODIPINE [Concomitant]
     Indication: HYPERTENSION
     Route: 048
  4. HCTZ [Concomitant]
     Indication: DIURETIC THERAPY
     Route: 048
  5. SIMVASTATIN [Concomitant]
     Indication: BLOOD CHOLESTEROL INCREASED
     Route: 048
  6. ERGOCALCIFEROL [Concomitant]
     Indication: VITAMIN D DEFICIENCY
     Route: 048
  7. ERGOCALCIFEROL [Concomitant]
     Route: 048

REACTIONS (4)
  - DECREASED APPETITE [None]
  - DEFAECATION URGENCY [None]
  - FLATULENCE [None]
  - NAUSEA [None]
